FAERS Safety Report 6768904-2 (Version None)
Quarter: 2010Q2

REPORT INFORMATION
  Report Type: 
  Country: None (occurrence: None)
  Receive Date: 20100603
  Receipt Date: 20100528
  Transmission Date: 20101027
  Serious: Yes (Other)
  Sender: FDA-Public Use
  Company Number: 2010SP016720

PATIENT
  Age: 18 Year
  Sex: Female

DRUGS (4)
  1. SAPHRIS [Suspect]
     Indication: DRUG USE FOR UNKNOWN INDICATION
     Dosage: 5 MG; QPM
  2. LITHIUM (CON.) [Concomitant]
  3. PERPHENAZINE (CON.) [Concomitant]
  4. KLONOPIN (CON.) [Concomitant]

REACTIONS (3)
  - DIARRHOEA HAEMORRHAGIC [None]
  - HAEMATEMESIS [None]
  - PANCREATITIS [None]
